FAERS Safety Report 8317381 (Version 3)
Quarter: 2015Q2

REPORT INFORMATION
  Report Type: Spontaneous
  Country: US (occurrence: US)
  Receive Date: 20111230
  Receipt Date: 20150402
  Transmission Date: 20150821
  Serious: Yes (Life-Threatening, Hospitalization, Congenital Anomaly)
  Sender: FDA-Public Use
  Company Number: US-ELI_LILLY_AND_COMPANY-US201112006701

PATIENT

DRUGS (2)
  1. PROZAC [Suspect]
     Active Substance: FLUOXETINE HYDROCHLORIDE
     Indication: DEPRESSION
     Route: 064
  2. PAXIL [Concomitant]
     Active Substance: PAROXETINE HYDROCHLORIDE

REACTIONS (5)
  - Congenital pulmonary valve disorder [Recovered/Resolved]
  - Cardiac failure congestive [Recovered/Resolved]
  - Foetal exposure during pregnancy [Recovered/Resolved]
  - Fallot^s tetralogy [Recovered/Resolved]
  - Respiratory distress [Recovered/Resolved]
